FAERS Safety Report 10202439 (Version 5)
Quarter: 2017Q1

REPORT INFORMATION
  Report Type: Spontaneous
  Country: US (occurrence: US)
  Receive Date: 20140528
  Receipt Date: 20170207
  Transmission Date: 20170428
  Serious: Yes (Hospitalization, Disabling, Other)
  Sender: FDA-Public Use
  Company Number: US-009507513-1405USA011450

PATIENT
  Sex: Female
  Weight: 58.05 kg

DRUGS (6)
  1. FOSAMAX [Suspect]
     Active Substance: ALENDRONATE SODIUM
     Indication: OSTEOPOROSIS
     Dosage: 10 MG, QD
     Route: 048
     Dates: start: 1998, end: 2001
  2. BONIVA [Suspect]
     Active Substance: IBANDRONATE SODIUM
     Indication: OSTEOPOROSIS
     Dosage: 150 MG, QM
     Route: 048
     Dates: start: 20100106, end: 201201
  3. VITAMINS (UNSPECIFIED) [Concomitant]
     Active Substance: VITAMINS
     Indication: PRODUCT USED FOR UNKNOWN INDICATION
     Dosage: UNK, QD
     Route: 065
     Dates: start: 1995
  4. CALCIUM (UNSPECIFIED) [Concomitant]
     Active Substance: CALCIUM
     Indication: PRODUCT USED FOR UNKNOWN INDICATION
     Dosage: 1000 MG, BID
     Route: 065
     Dates: start: 1995
  5. MEPROBAMATE. [Concomitant]
     Active Substance: MEPROBAMATE
     Indication: ANXIETY
     Dosage: UNK, UNKNOWN
     Route: 065
     Dates: start: 1985
  6. FOSAMAX [Suspect]
     Active Substance: ALENDRONATE SODIUM
     Dosage: 70 MG, QW
     Route: 048
     Dates: start: 2002, end: 201001

REACTIONS (21)
  - Cataract operation [Unknown]
  - Rotator cuff syndrome [Unknown]
  - Osteoarthritis [Unknown]
  - Fluid retention [Not Recovered/Not Resolved]
  - Femur fracture [Recovered/Resolved]
  - Haemorrhagic anaemia [Unknown]
  - Spinal osteoarthritis [Unknown]
  - Spinal pain [Unknown]
  - Gastrooesophageal reflux disease [Not Recovered/Not Resolved]
  - Osteopenia [Unknown]
  - Vertebral foraminal stenosis [Unknown]
  - Asthma [Unknown]
  - Rhinoplasty [Unknown]
  - Neck pain [Unknown]
  - Dental implantation [Unknown]
  - Muscle spasms [Unknown]
  - Osteoporosis [Not Recovered/Not Resolved]
  - Sciatica [Unknown]
  - Lymphoedema [Unknown]
  - Nerve root compression [Unknown]
  - Nausea [Unknown]

NARRATIVE: CASE EVENT DATE: 2000
